FAERS Safety Report 4623852-9 (Version None)
Quarter: 2005Q1

REPORT INFORMATION
  Report Type: 
  Country: None (occurrence: None)
  Receive Date: 20050331
  Receipt Date: 20050216
  Transmission Date: 20050727
  Serious: Yes (Hospitalization)
  Sender: FDA-Public Use
  Company Number: 200511453GDDC

PATIENT
  Age: 79 Year
  Sex: Female
  Weight: 55 kg

DRUGS (27)
  1. ENOXAPARIN SODIUM [Suspect]
     Dosage: DOSE: OPEN LABEL PHASE ENOXAPARIN 40 MG
     Route: 058
     Dates: start: 20050104, end: 20050113
  2. ENOXAPARIN SODIUM [Suspect]
     Dosage: DOSE: CODE BROKEN: ENOXAPARIN 40 MG
     Route: 058
     Dates: start: 20050114, end: 20050212
  3. AUGMENTIN '125' [Suspect]
     Dates: start: 20041217, end: 20041224
  4. PREDNISONE [Concomitant]
     Indication: CHRONIC OBSTRUCTIVE PULMONARY DISEASE
     Route: 048
     Dates: start: 20050101
  5. ATROVENT [Concomitant]
     Indication: CHRONIC OBSTRUCTIVE PULMONARY DISEASE
     Route: 055
  6. BRICANYL [Concomitant]
     Indication: CHRONIC OBSTRUCTIVE PULMONARY DISEASE
     Route: 055
  7. TRIBEMIN [Concomitant]
     Dosage: DOSE: 1 TAB
     Route: 048
  8. MICROPIRIN [Concomitant]
     Route: 048
     Dates: end: 20050116
  9. ELATROLET [Concomitant]
     Indication: DEPRESSION
     Route: 048
     Dates: end: 20050116
  10. BEZAFIBRATE [Concomitant]
     Indication: HYPERLIPIDAEMIA
     Route: 048
  11. LOSEC [Concomitant]
     Indication: GASTRITIS
     Route: 048
  12. ALDACTONE [Concomitant]
     Indication: OEDEMA
     Route: 048
     Dates: start: 20050110, end: 20050116
  13. MUCOLIT [Concomitant]
     Indication: CHRONIC OBSTRUCTIVE PULMONARY DISEASE
     Route: 048
     Dates: start: 20050101, end: 20050102
  14. SIRAN [Concomitant]
     Indication: CHRONIC OBSTRUCTIVE PULMONARY DISEASE
     Route: 048
     Dates: start: 20050201
  15. ACAMOL [Concomitant]
     Indication: PYREXIA
     Route: 048
     Dates: start: 20050104, end: 20050104
  16. MAGNESIUM SULFATE (WITH SODIUM CHLORIDE) [Concomitant]
     Indication: OEDEMA
     Route: 042
     Dates: start: 20050104, end: 20050104
  17. HYDROCORTISON [Concomitant]
     Indication: RESPIRATORY DISTRESS
     Route: 042
     Dates: start: 20050105, end: 20050109
  18. TAZOCIN [Concomitant]
     Indication: PNEUMONIA
     Route: 042
     Dates: start: 20050105, end: 20050114
  19. NORVASC [Concomitant]
     Indication: HYPERTENSION
     Route: 048
     Dates: start: 20050109, end: 20050109
  20. DIGOXIN [Concomitant]
     Indication: CARDIAC FAILURE CONGESTIVE
     Route: 042
     Dates: start: 20050109, end: 20050109
  21. IKACOR [Concomitant]
     Indication: CONDUCTION DISORDER
     Route: 030
     Dates: start: 20050109, end: 20050109
  22. SLOW-K [Concomitant]
     Indication: HYPOKALAEMIA
     Route: 048
     Dates: start: 20050110
  23. PULMOCARE [Concomitant]
     Indication: ENTERAL NUTRITION
     Dates: start: 20050111
  24. SEDURAL [Concomitant]
     Indication: ANALGESIC THERAPY
  25. SEDURAL [Concomitant]
     Indication: URINARY TRACT PAIN
  26. CALCIMORE [Concomitant]
     Indication: DYSPEPSIA
     Route: 048
     Dates: start: 20050116
  27. ELATROL [Concomitant]
     Indication: DEPRESSION
     Route: 048
     Dates: start: 20050116

REACTIONS (18)
  - ANAEMIA [None]
  - BLOOD ALKALINE PHOSPHATASE INCREASED [None]
  - BLOOD BILIRUBIN INCREASED [None]
  - CHOLELITHIASIS [None]
  - CYTOMEGALOVIRUS ANTIBODY POSITIVE [None]
  - ELECTROCARDIOGRAM CHANGE [None]
  - HAEMATOCRIT DECREASED [None]
  - HAEMOGLOBIN DECREASED [None]
  - HEPATITIS [None]
  - HEPATITIS B SURFACE ANTIGEN POSITIVE [None]
  - JAUNDICE [None]
  - NEUTROPHIL COUNT INCREASED [None]
  - PROTHROMBIN TIME PROLONGED [None]
  - PYREXIA [None]
  - RED BLOOD CELL COUNT DECREASED [None]
  - THROMBOCYTHAEMIA [None]
  - TRANSAMINASES INCREASED [None]
  - WHITE BLOOD CELL COUNT INCREASED [None]
